FAERS Safety Report 20657283 (Version 1)
Quarter: 2022Q1

REPORT INFORMATION
  Report Type: Spontaneous
  Country: US (occurrence: US)
  Receive Date: 20220331
  Receipt Date: 20220331
  Transmission Date: 20220423
  Serious: Yes (Hospitalization)
  Sender: FDA-Public Use
  Company Number: US-SAREPTA THERAPEUTICS INC.-SRP2022-002162

PATIENT
  Sex: Male
  Weight: 146.6 kg

DRUGS (14)
  1. EXONDYS 51 [Suspect]
     Active Substance: ETEPLIRSEN
     Indication: Duchenne muscular dystrophy
     Dosage: 4000 MILLIGRAM, WEEKLY
     Route: 042
     Dates: start: 20171102
  2. PREDNISONE [Concomitant]
     Active Substance: PREDNISONE
     Indication: Product used for unknown indication
     Dosage: 200 MILLIGRAM, TWICE WEEKLY ON SATURDAY AND SUNDAY
     Route: 048
     Dates: start: 20171102
  3. INSPRA [Concomitant]
     Active Substance: EPLERENONE
     Indication: Product used for unknown indication
     Dosage: 50 MILLIGRAM, DAILY QHS
     Route: 048
     Dates: start: 20171102
  4. IBUPROFEN [Concomitant]
     Active Substance: IBUPROFEN
     Indication: Pain
     Dosage: 600 MILLIGRAM, BID
     Route: 048
     Dates: start: 20171102
  5. IBUPROFEN [Concomitant]
     Active Substance: IBUPROFEN
     Dosage: 400 MILLIGRAM, BID
  6. CALCIUM\CHOLECALCIFEROL [Concomitant]
     Active Substance: CALCIUM\CHOLECALCIFEROL
     Indication: Product used for unknown indication
     Dosage: 315-200 OR, BID
     Route: 048
     Dates: start: 20171102
  7. LIDOCAINE\PRILOCAINE [Concomitant]
     Active Substance: LIDOCAINE\PRILOCAINE
     Indication: Product used for unknown indication
     Dosage: 2.5-2.5%, PRN
     Route: 061
     Dates: start: 20171102
  8. CLARITIN [Concomitant]
     Active Substance: LORATADINE
     Indication: Product used for unknown indication
     Dosage: 10 MILLIGRAM, DAILY, PRN
     Route: 048
     Dates: start: 20180517
  9. ALBUTEROL SULFATE [Concomitant]
     Active Substance: ALBUTEROL SULFATE
     Indication: Product used for unknown indication
     Dosage: 2.5 MG/3ML NEB EVERY 3-4HOURS PRN
     Dates: start: 20180517
  10. COREG [Concomitant]
     Active Substance: CARVEDILOL
     Indication: Cardiac failure
     Dosage: 25 MILLIGRAM, BID
     Route: 048
     Dates: start: 20181211
  11. COREG [Concomitant]
     Active Substance: CARVEDILOL
     Dosage: 50 MILLIGRAM, BID
  12. ACETAMINOPHEN [Concomitant]
     Active Substance: ACETAMINOPHEN
     Indication: Product used for unknown indication
     Dosage: 325 MILLIGRAM, BID
     Route: 048
     Dates: start: 20191021
  13. EMFLAZA [Concomitant]
     Active Substance: DEFLAZACORT
     Indication: Product used for unknown indication
     Dosage: 144 MILLIGRAM, Q SATURDAY, SUNDAY
     Route: 048
  14. EMFLAZA [Concomitant]
     Active Substance: DEFLAZACORT
     Dosage: 4 DOSAGE FORM, EVERY SATURDAY AND SUNDAY
     Route: 048

REACTIONS (1)
  - Chest discomfort [Unknown]
